FAERS Safety Report 21593378 (Version 1)
Quarter: 2022Q4

REPORT INFORMATION
  Report Type: Report from Study
  Country: US (occurrence: US)
  Receive Date: 20221114
  Receipt Date: 20221114
  Transmission Date: 20230112
  Serious: No
  Sender: FDA-Public Use
  Company Number: US-BRISTOL-MYERS SQUIBB COMPANY-2022-137431

PATIENT
  Age: 27 Year
  Sex: Female

DRUGS (1)
  1. THALOMID [Suspect]
     Active Substance: THALIDOMIDE
     Indication: Product used for unknown indication
     Dosage: ^FREQUENCY: 84^
     Route: 065
     Dates: start: 201712

REACTIONS (1)
  - Human chorionic gonadotropin increased [Unknown]

NARRATIVE: CASE EVENT DATE: 20221111
